FAERS Safety Report 4876505-6 (Version None)
Quarter: 2006Q1

REPORT INFORMATION
  Report Type: 
  Country: None (occurrence: None)
  Receive Date: 20060110
  Receipt Date: 20020725
  Transmission Date: 20060701
  Serious: Yes (Hospitalization)
  Sender: FDA-Public Use
  Company Number: US-GLAXOSMITHKLINE-A0375693A

PATIENT
  Age: 32 Year
  Sex: Male
  Weight: 79.5 kg

DRUGS (5)
  1. LAMICTAL [Suspect]
     Indication: BIPOLAR DISORDER
     Route: 048
     Dates: start: 20010418, end: 20020802
  2. ZOLOFT [Concomitant]
     Indication: BIPOLAR DISORDER
     Dosage: 50MG PER DAY
     Route: 048
     Dates: start: 20010613
  3. ESKALITH [Concomitant]
     Indication: BIPOLAR DISORDER
     Dosage: 450MG TWICE PER DAY
     Route: 048
     Dates: start: 20011003
  4. ATIVAN [Concomitant]
     Indication: ANXIETY
     Dosage: .5MG AS REQUIRED
     Route: 048
     Dates: start: 20020403
  5. CYTOMEL [Concomitant]
     Dosage: 5MG PER DAY
     Route: 048
     Dates: start: 20020715

REACTIONS (7)
  - ABSCESS LIMB [None]
  - CYST [None]
  - DERMATITIS [None]
  - FOLLICULITIS [None]
  - PANNICULITIS [None]
  - STAPHYLOCOCCAL INFECTION [None]
  - TOXIC EPIDERMAL NECROLYSIS [None]
